FAERS Safety Report 24053069 (Version 1)
Quarter: 2024Q3

REPORT INFORMATION
  Report Type: Spontaneous
  Country: CA (occurrence: CA)
  Receive Date: 20240705
  Receipt Date: 20240705
  Transmission Date: 20241017
  Serious: Yes (Congenital Anomaly, Other)
  Sender: BAUSCH AND LOMB
  Company Number: CA-BAUSCH-BL-2024-010240

PATIENT
  Sex: Male

DRUGS (1)
  1. METFORMIN [Suspect]
     Active Substance: METFORMIN HYDROCHLORIDE
     Indication: Diabetes mellitus
     Route: 065

REACTIONS (9)
  - Asthenia [Unknown]
  - Choking sensation [Unknown]
  - Drug hypersensitivity [Unknown]
  - Dysphagia [Unknown]
  - Eye swelling [Unknown]
  - Lip swelling [Unknown]
  - Scrotal swelling [Unknown]
  - Swollen tongue [Unknown]
  - Dysphagia [Unknown]
